FAERS Safety Report 13926605 (Version 3)
Quarter: 2017Q4

REPORT INFORMATION
  Report Type: Spontaneous
  Country: JP (occurrence: JP)
  Receive Date: 20170831
  Receipt Date: 20171030
  Transmission Date: 20180320
  Serious: Yes (Hospitalization)
  Sender: FDA-Public Use
  Company Number: JP-DSJP-DSJ-2017-112629

PATIENT
  Age: 9 Decade
  Sex: Female
  Weight: 38 kg

DRUGS (1)
  1. LIXIANA TABLETS 30MG [Suspect]
     Active Substance: EDOXABAN TOSYLATE
     Indication: ATRIAL FIBRILLATION
     Dosage: 30 MG, QD
     Route: 048
     Dates: start: 20170315, end: 20170414

REACTIONS (3)
  - Abdominal wall haematoma [Recovering/Resolving]
  - Abdominal pain upper [Unknown]
  - Contusion [Unknown]

NARRATIVE: CASE EVENT DATE: 20170320
